FAERS Safety Report 4311015-6 (Version None)
Quarter: 2004Q1

REPORT INFORMATION
  Report Type: 
  Country: None (occurrence: None)
  Receive Date: 20040302
  Receipt Date: 20040302
  Transmission Date: 20041129
  Serious: Yes (Life-Threatening, Hospitalization)
  Sender: FDA-Public Use
  Company Number: None

PATIENT
  Sex: Female
  Weight: 93 kg

DRUGS (9)
  1. OMNIPAQUE 240 [Suspect]
     Indication: CATHETERISATION CARDIAC
     Dosage: FOR SURGERY
     Dates: start: 20040203, end: 20040203
  2. DARVOCET-N 100 [Concomitant]
  3. NEURONTIN [Concomitant]
  4. COUMADIN [Concomitant]
  5. NITROGLYCERIN SL [Concomitant]
  6. CARDENE SR [Concomitant]
  7. LECTITHIN [Concomitant]
  8. COQ10 [Concomitant]
  9. BENADRYL [Concomitant]

REACTIONS (3)
  - BLOOD PRESSURE DECREASED [None]
  - RASH ERYTHEMATOUS [None]
  - RASH PRURITIC [None]
